FAERS Safety Report 21681775 (Version 2)
Quarter: 2022Q4

REPORT INFORMATION
  Report Type: Spontaneous
  Country: JP (occurrence: JP)
  Receive Date: 20221205
  Receipt Date: 20221206
  Transmission Date: 20230113
  Serious: Yes (Death, Hospitalization, Other)
  Sender: FDA-Public Use
  Company Number: JP-002147023-NVSJ2022JP275419

PATIENT
  Age: 37 Year
  Sex: Female

DRUGS (6)
  1. AFINITOR [Suspect]
     Active Substance: EVEROLIMUS
     Indication: Neuroendocrine tumour
     Dosage: UNK
     Route: 048
  2. LUTATHERA [Suspect]
     Active Substance: LUTETIUM OXODOTREOTIDE LU-177
     Indication: Carcinoid tumour in the large intestine
     Dosage: 150 MCI
     Route: 042
  3. LUTATHERA [Suspect]
     Active Substance: LUTETIUM OXODOTREOTIDE LU-177
     Dosage: 100 MCI
     Route: 042
  4. OCTREOTIDE ACETATE [Suspect]
     Active Substance: OCTREOTIDE ACETATE
     Indication: Neuroendocrine tumour
     Dosage: UNK
     Route: 065
  5. OCTREOTIDE ACETATE [Suspect]
     Active Substance: OCTREOTIDE ACETATE
  6. OCTREOTIDE ACETATE [Suspect]
     Active Substance: OCTREOTIDE ACETATE

REACTIONS (17)
  - Metastases to liver [Fatal]
  - Gait disturbance [Fatal]
  - Concomitant disease progression [Fatal]
  - Metastases to bone [Fatal]
  - Pain [Fatal]
  - Metastases to pleura [Fatal]
  - Metastases to lung [Fatal]
  - Respiration abnormal [Fatal]
  - Platelet count decreased [Unknown]
  - Purpura [Unknown]
  - General physical health deterioration [Unknown]
  - Metastases to lymph nodes [Unknown]
  - Diabetes mellitus [Unknown]
  - Stomatitis [Unknown]
  - Catheter site haematoma [Unknown]
  - Oedema peripheral [Recovering/Resolving]
  - Pleural effusion [Unknown]
